FAERS Safety Report 8570440 (Version 2)
Quarter: 2013Q3

REPORT INFORMATION
  Report Type: Report from Study
  Country: MX (occurrence: MX)
  Receive Date: 20120521
  Receipt Date: 20130716
  Transmission Date: 20140515
  Serious: Yes (Other)
  Sender: FDA-Public Use
  Company Number: PHHY2012MX042509

PATIENT
  Age: 90 Year
  Sex: Female

DRUGS (1)
  1. DIOVAN [Suspect]
     Indication: HYPERTENSION
     Dosage: 80 MG, EVERY OTHER DAY

REACTIONS (2)
  - Deafness [Not Recovered/Not Resolved]
  - Tonsillar disorder [Not Recovered/Not Resolved]
